FAERS Safety Report 6471879-7 (Version None)
Quarter: 2009Q4

REPORT INFORMATION
  Report Type: 
  Country: None (occurrence: None)
  Receive Date: 20091203
  Receipt Date: 20091203
  Transmission Date: 20100525
  Serious: Yes (Life-Threatening)
  Sender: FDA-Public Use
  Company Number: US-ROXANE LABORATORIES, INC.-2009-RO-01213RO

PATIENT
  Age: 69 Year
  Sex: Female

DRUGS (3)
  1. MORPHINE [Suspect]
  2. ASPIRIN [Suspect]
  3. METFORMIN HCL [Concomitant]

REACTIONS (1)
  - APPARENT DEATH [None]
